FAERS Safety Report 16113418 (Version 2)
Quarter: 2019Q2

REPORT INFORMATION
  Report Type: Spontaneous
  Country: US (occurrence: US)
  Receive Date: 20190325
  Receipt Date: 20190618
  Transmission Date: 20190711
  Serious: Yes (Hospitalization, Other)
  Sender: FDA-Public Use
  Company Number: US-PFIZER INC-2019123166

PATIENT
  Age: 65 Year
  Sex: Female

DRUGS (1)
  1. XELJANZ [Suspect]
     Active Substance: TOFACITINIB CITRATE
     Dosage: 10 MG, UNK
     Route: 048

REACTIONS (6)
  - Product use issue [Unknown]
  - Oropharyngeal pain [Unknown]
  - Malaise [Unknown]
  - Off label use [Unknown]
  - Gastric disorder [Unknown]
  - Pneumonia [Unknown]
